FAERS Safety Report 21627697 (Version 1)
Quarter: 2022Q4

REPORT INFORMATION
  Report Type: Spontaneous
  Country: US (occurrence: US)
  Receive Date: 20221122
  Receipt Date: 20221122
  Transmission Date: 20230112
  Serious: No
  Sender: FDA-Public Use
  Company Number: US-Adare-2022-US-000023

PATIENT
  Age: 10 Year
  Sex: Male

DRUGS (1)
  1. DEXMETHYLPHENIDATE HYDROCHLORIDE [Suspect]
     Active Substance: DEXMETHYLPHENIDATE HYDROCHLORIDE
     Indication: Attention deficit hyperactivity disorder
     Route: 048
     Dates: start: 20220427

REACTIONS (6)
  - Product complaint [Unknown]
  - Product substitution issue [Unknown]
  - Drug ineffective [Unknown]
  - Abnormal behaviour [Unknown]
  - Affect lability [Unknown]
  - Product complaint [Unknown]

NARRATIVE: CASE EVENT DATE: 20220427
